FAERS Safety Report 8680226 (Version 2)
Quarter: 2013Q2

REPORT INFORMATION
  Report Type: Spontaneous
  Country: US (occurrence: US)
  Receive Date: 20120724
  Receipt Date: 20130506
  Transmission Date: 20140414
  Serious: Yes (Other)
  Sender: FDA-Public Use
  Company Number: US-ASTRAZENECA-2012SE49820

PATIENT
  Age: 65 Year
  Sex: Male

DRUGS (1)
  1. NEXIUM [Suspect]
     Route: 048

REACTIONS (4)
  - Hernia [Unknown]
  - Abdominal distension [Unknown]
  - Weight decreased [Unknown]
  - Cervical spinal stenosis [Unknown]
